FAERS Safety Report 10045041 (Version 1)
Quarter: 2014Q1

REPORT INFORMATION
  Report Type: Spontaneous
  Country: PL (occurrence: PL)
  Receive Date: 20140328
  Receipt Date: 20140328
  Transmission Date: 20141002
  Serious: Yes (Other)
  Sender: FDA-Public Use
  Company Number: PHHY2014PL032951

PATIENT
  Sex: Female

DRUGS (7)
  1. HYDROCHLOROTHIAZIDE [Suspect]
     Route: 064
  2. LAMITRIN [Suspect]
     Indication: EPILEPSY
     Route: 064
  3. DEPAKINE CHRONO [Suspect]
     Indication: EPILEPSY
     Route: 064
  4. DOPEGYT [Suspect]
     Route: 064
  5. ASPARGIN [Suspect]
     Route: 064
  6. SORBIFER//FERROUS SULFATE [Suspect]
     Route: 064
  7. FEMIBION [Suspect]
     Route: 064

REACTIONS (2)
  - Apgar score low [Unknown]
  - Foetal exposure during pregnancy [Unknown]
